FAERS Safety Report 10678434 (Version 2)
Quarter: 2014Q4

REPORT INFORMATION
  Report Type: Spontaneous
  Country: CN (occurrence: CN)
  Receive Date: 20141229
  Receipt Date: 20141229
  Transmission Date: 20150529
  Serious: Yes (Death, Hospitalization, Other)
  Sender: FDA-Public Use
  Company Number: CN-PFIZER INC-K200500366

PATIENT
  Age: 34 Year
  Sex: Female
  Weight: 48 kg

DRUGS (3)
  1. KETALAR [Suspect]
     Active Substance: KETAMINE HYDROCHLORIDE
     Indication: POISONING
     Dosage: 100 MG, UNK
     Route: 048
     Dates: start: 200209
  2. KETALAR [Suspect]
     Active Substance: KETAMINE HYDROCHLORIDE
     Dosage: 300 MG, UNK
     Route: 048
  3. KETALAR [Suspect]
     Active Substance: KETAMINE HYDROCHLORIDE
     Dosage: 200 MG, UNK
     Route: 048

REACTIONS (13)
  - Victim of homicide [Fatal]
  - Hypoxia [Fatal]
  - Pulmonary oedema [Fatal]
  - Loss of consciousness [Fatal]
  - Cardiac failure [Fatal]
  - Myocardial fibrosis [Fatal]
  - Hyperaemia [Fatal]
  - Respiratory depression [Fatal]
  - Pulmonary haemorrhage [Fatal]
  - Cardiomyopathy [Fatal]
  - Pulse absent [Fatal]
  - Poisoning [Fatal]
  - Brain oedema [Fatal]

NARRATIVE: CASE EVENT DATE: 200209
